FAERS Safety Report 8162106-3 (Version None)
Quarter: 2012Q1

REPORT INFORMATION
  Report Type: 
  Country: None (occurrence: None)
  Receive Date: 20120224
  Receipt Date: 20120215
  Transmission Date: 20120608
  Serious: Yes (Death, Hospitalization, Other)
  Sender: FDA-Public Use
  Company Number: NL-SANOFI-AVENTIS-2012SA003918

PATIENT
  Sex: Male

DRUGS (1)
  1. JEVTANA KIT [Suspect]
     Indication: PROSTATE CANCER
     Route: 042
     Dates: start: 20111116, end: 20111116

REACTIONS (5)
  - BACTERAEMIA [None]
  - RENAL FAILURE [None]
  - PNEUMONIA [None]
  - OEDEMA [None]
  - HAEMORRHAGE [None]
